FAERS Safety Report 7385346-X (Version None)
Quarter: 2011Q1

REPORT INFORMATION
  Report Type: 
  Country: None (occurrence: None)
  Receive Date: 20110330
  Receipt Date: 20100930
  Transmission Date: 20110831
  Serious: No
  Sender: FDA-Public Use
  Company Number: US-MYLANLABS-2010S1018042

PATIENT
  Age: 57 Year
  Sex: Female
  Weight: 83.92 kg

DRUGS (5)
  1. XANAX [Concomitant]
     Indication: ANXIETY
     Route: 048
  2. CELEBREX [Concomitant]
     Indication: BACK PAIN
  3. NEXIUM [Concomitant]
     Indication: GASTRIC DISORDER
     Route: 048
  4. LEVOTHYROXINE SODIUM [Concomitant]
     Indication: THYROID DISORDER
     Route: 048
  5. EMSAM [Suspect]
     Indication: DEPRESSION
     Dosage: CHANGED Q24H
     Route: 062
     Dates: start: 20100923

REACTIONS (2)
  - APPLICATION SITE RASH [None]
  - APPLICATION SITE PRURITUS [None]
